FAERS Safety Report 17375564 (Version 1)
Quarter: 2020Q1

REPORT INFORMATION
  Report Type: Spontaneous
  Country: IN (occurrence: IN)
  Receive Date: 20200206
  Receipt Date: 20200206
  Transmission Date: 20200409
  Serious: Yes (Other)
  Sender: FDA-Public Use
  Company Number: IN-GILEAD-2020-0449580

PATIENT
  Age: 58 Year
  Sex: Female

DRUGS (4)
  1. 3TC [Concomitant]
     Active Substance: LAMIVUDINE
  2. COTRIMOXAZOLE [Concomitant]
     Active Substance: SULFAMETHOXAZOLE\TRIMETHOPRIM
  3. EFAVIRENZ. [Concomitant]
     Active Substance: EFAVIRENZ
  4. VIREAD [Suspect]
     Active Substance: TENOFOVIR DISOPROXIL FUMARATE
     Indication: HIV INFECTION
     Dosage: 300 MG, QD
     Route: 065

REACTIONS (1)
  - Renal tubular acidosis [Recovered/Resolved]
